FAERS Safety Report 5918935-7 (Version None)
Quarter: 2008Q4

REPORT INFORMATION
  Report Type: 
  Country: None (occurrence: None)
  Receive Date: 20081015
  Receipt Date: 20081006
  Transmission Date: 20090506
  Serious: Yes (Other)
  Sender: FDA-Public Use
  Company Number: US-ROCHE-585942

PATIENT
  Sex: Male
  Weight: 81.6 kg

DRUGS (2)
  1. CAPECITABINE [Suspect]
     Indication: CARCINOID TUMOUR
     Dosage: TWO WEEKS ON AND TWO WEEK OFF
     Route: 048
     Dates: start: 20080715, end: 20080829
  2. TEMODAR [Concomitant]

REACTIONS (1)
  - DISEASE PROGRESSION [None]
